FAERS Safety Report 22151132 (Version 1)
Quarter: 2023Q1

REPORT INFORMATION
  Report Type: Spontaneous
  Country: RO (occurrence: RO)
  Receive Date: 20230329
  Receipt Date: 20230329
  Transmission Date: 20230417
  Serious: Yes (Life-Threatening)
  Sender: FDA-Public Use
  Company Number: RO-JNJFOC-20230366596

PATIENT
  Age: 71 Year
  Sex: Male

DRUGS (4)
  1. STELARA [Suspect]
     Active Substance: USTEKINUMAB
     Indication: Crohn^s disease
     Route: 040
     Dates: start: 20201005
  2. STELARA [Suspect]
     Active Substance: USTEKINUMAB
     Route: 058
     Dates: end: 20230324
  3. AZATHIOPRINE [Concomitant]
     Active Substance: AZATHIOPRINE
     Indication: Crohn^s disease
     Route: 048
     Dates: start: 20230120, end: 20230324
  4. AZATHIOPRINE [Concomitant]
     Active Substance: AZATHIOPRINE
     Dates: start: 2014, end: 2017

REACTIONS (1)
  - Malignant melanoma [Not Recovered/Not Resolved]
